FAERS Safety Report 7821832-3 (Version None)
Quarter: 2011Q4

REPORT INFORMATION
  Report Type: 
  Country: None (occurrence: None)
  Receive Date: 20111018
  Receipt Date: 20110620
  Transmission Date: 20120403
  Serious: No
  Sender: FDA-Public Use
  Company Number: US-ASTRAZENECA-2011SE32018

PATIENT
  Age: 56 Year
  Sex: Female

DRUGS (3)
  1. SEREVENT [Suspect]
     Route: 065
  2. SYMBICORT [Suspect]
     Route: 055
  3. QVAR 40 [Suspect]
     Route: 065

REACTIONS (2)
  - DYSPNOEA [None]
  - DRUG DOSE OMISSION [None]
